APPROVED DRUG PRODUCT: GRALISE
Active Ingredient: GABAPENTIN
Strength: 900MG
Dosage Form/Route: TABLET;ORAL
Application: N022544 | Product #005 | TE Code: AB
Applicant: ALMATICA PHARMA INC
Approved: Apr 18, 2023 | RLD: Yes | RS: Yes | Type: RX